FAERS Safety Report 5295102-4 (Version None)
Quarter: 2007Q1

REPORT INFORMATION
  Report Type: 
  Country: None (occurrence: None)
  Receive Date: 20070201
  Receipt Date: 20061020
  Transmission Date: 20070707
  Serious: No
  Sender: FDA-Public Use
  Company Number: 2006PV023675

PATIENT
  Age: 33 Year
  Sex: Female
  Weight: 113.8529 kg

DRUGS (3)
  1. BYETTA [Suspect]
     Indication: DIABETES MELLITUS NON-INSULIN-DEPENDENT
     Dosage: 5 MCG;BID;SC
     Route: 058
     Dates: start: 20061014
  2. METFORMIN HCL [Concomitant]
  3. LUNESTA [Concomitant]

REACTIONS (8)
  - DECREASED APPETITE [None]
  - DRUG EFFECT DECREASED [None]
  - DRUG INEFFECTIVE FOR UNAPPROVED INDICATION [None]
  - DYSPEPSIA [None]
  - INJECTION SITE BRUISING [None]
  - INJECTION SITE ERYTHEMA [None]
  - INJECTION SITE RASH [None]
  - THERAPEUTIC RESPONSE UNEXPECTED [None]
